FAERS Safety Report 20097704 (Version 1)
Quarter: 2021Q4

REPORT INFORMATION
  Report Type: Spontaneous
  Country: US (occurrence: US)
  Receive Date: 20211122
  Receipt Date: 20211122
  Transmission Date: 20220303
  Serious: No
  Sender: FDA-Public Use
  Company Number: US-ANIPHARMA-2021-US-004549

PATIENT
  Age: 61 Year
  Sex: Female
  Weight: 69.85 kg

DRUGS (8)
  1. FLECAINIDE ACETATE [Suspect]
     Active Substance: FLECAINIDE ACETATE
     Indication: Ventricular extrasystoles
     Dosage: 100 MG BID
     Route: 048
     Dates: start: 202011, end: 202102
  2. ENBREL [Suspect]
     Active Substance: ETANERCEPT
  3. AMBIEN [Suspect]
     Active Substance: ZOLPIDEM TARTRATE
  4. LEVOTHYROXINE [Suspect]
     Active Substance: LEVOTHYROXINE
  5. PRAVASTATIN [Suspect]
     Active Substance: PRAVASTATIN
  6. PANTOPRAZOLE [Suspect]
     Active Substance: PANTOPRAZOLE
  7. CARTIA XT [Suspect]
     Active Substance: DILTIAZEM HYDROCHLORIDE
  8. ALIGN [Suspect]
     Active Substance: BIFIDOBACTERIUM LONGUM SUBSP. INFANTIS

REACTIONS (3)
  - Blister [Unknown]
  - Urticaria [Unknown]
  - Pruritus [Unknown]

NARRATIVE: CASE EVENT DATE: 20201101
